FAERS Safety Report 25230569 (Version 1)
Quarter: 2025Q2

REPORT INFORMATION
  Report Type: Spontaneous
  Country: US (occurrence: None)
  Receive Date: 20250423
  Receipt Date: 20250423
  Transmission Date: 20250717
  Serious: No
  Sender: INCYTE
  Company Number: US-INCYTE CORPORATION-2025IN004006

PATIENT
  Age: 78 Year
  Weight: 74.39 kg

DRUGS (1)
  1. JAKAFI [Suspect]
     Active Substance: RUXOLITINIB
     Indication: Essential thrombocythaemia
     Dosage: 20 MILLIGRAM, BID

REACTIONS (3)
  - Norovirus infection [Unknown]
  - Product dose omission issue [Unknown]
  - Off label use [Unknown]
